FAERS Safety Report 5048849-9 (Version None)
Quarter: 2006Q2

REPORT INFORMATION
  Report Type: 
  Country: None (occurrence: None)
  Receive Date: 20060601
  Receipt Date: 20060301
  Transmission Date: 20061013
  Serious: No
  Sender: FDA-Public Use
  Company Number: US200603000844

PATIENT
  Age: 62 Year
  Sex: Female

DRUGS (3)
  1. CYMBALTA [Suspect]
     Indication: NEUROPATHY
     Dosage: SEE IMAGE
     Dates: end: 20060226
  2. CYMBALTA [Suspect]
     Indication: NEUROPATHY
     Dosage: SEE IMAGE
     Dates: start: 20060227, end: 20060227
  3. CYMBALTA [Suspect]
     Indication: NEUROPATHY
     Dosage: SEE IMAGE
     Dates: start: 20060228

REACTIONS (1)
  - PARAESTHESIA [None]
